FAERS Safety Report 5126471-3 (Version None)
Quarter: 2006Q4

REPORT INFORMATION
  Report Type: 
  Country: None (occurrence: None)
  Receive Date: 20061010
  Receipt Date: 20060927
  Transmission Date: 20070319
  Serious: Yes (Hospitalization)
  Sender: FDA-Public Use
  Company Number: 2006108750

PATIENT
  Age: 80 Year
  Sex: Male
  Weight: 61.24 kg

DRUGS (7)
  1. SUTENT [Suspect]
     Indication: RENAL CELL CARCINOMA STAGE UNSPECIFIED
     Dosage: 50 MG (50 MG, FREQ: QD; INTER: X28 DAYS W/2 WK REST), ORAL
     Route: 048
     Dates: start: 20051221
  2. LEXAPRO [Concomitant]
  3. PROTONIX [Concomitant]
  4. CARAFATE [Concomitant]
  5. PROCRIT [Concomitant]
  6. ALLOPURINOL [Concomitant]
  7. LASIX [Concomitant]

REACTIONS (1)
  - RECTAL ABSCESS [None]
